FAERS Safety Report 18108028 (Version 1)
Quarter: 2020Q3

REPORT INFORMATION
  Report Type: Spontaneous
  Country: US (occurrence: US)
  Receive Date: 20200803
  Receipt Date: 20200803
  Transmission Date: 20201103
  Serious: Yes (Other)
  Sender: FDA-Public Use
  Company Number: US-PURDUE-USA-2020-0159535

PATIENT

DRUGS (3)
  1. OXYCONTIN [Suspect]
     Active Substance: OXYCODONE HYDROCHLORIDE
     Indication: PRODUCT USED FOR UNKNOWN INDICATION
     Dosage: UNK
     Route: 048
  2. VICODIN [Suspect]
     Active Substance: ACETAMINOPHEN\HYDROCODONE BITARTRATE
     Indication: PAIN
     Route: 065
  3. NORCO [Suspect]
     Active Substance: ACETAMINOPHEN\HYDROCODONE BITARTRATE
     Indication: PRODUCT USED FOR UNKNOWN INDICATION
     Route: 065

REACTIONS (9)
  - Drug dependence [Unknown]
  - Drug use disorder [Unknown]
  - Withdrawal syndrome [Unknown]
  - Weight increased [Unknown]
  - Sleep disorder [Unknown]
  - Disturbance in attention [Unknown]
  - Sleep apnoea syndrome [Unknown]
  - Drug-induced liver injury [Unknown]
  - Emotional distress [Unknown]

NARRATIVE: CASE EVENT DATE: 200709
